FAERS Safety Report 6144601-1 (Version None)
Quarter: 2009Q2

REPORT INFORMATION
  Report Type: 
  Country: None (occurrence: None)
  Receive Date: 20090406
  Receipt Date: 20090324
  Transmission Date: 20091009
  Serious: Yes (Hospitalization)
  Sender: FDA-Public Use
  Company Number: FR-PFIZER INC-2009153589

PATIENT

DRUGS (5)
  1. XANAX [Suspect]
     Indication: ANXIETY
     Dosage: UNK
     Route: 048
     Dates: start: 20081221, end: 20081224
  2. IBUPROFEN TABLETS [Suspect]
     Indication: HEADACHE
     Dosage: 800 MG, 1X/DAY
     Route: 048
     Dates: start: 20080216, end: 20081224
  3. PARACETAMOL [Concomitant]
     Dosage: UNK
     Route: 047
     Dates: start: 20081216, end: 20081220
  4. PARACETAMOL [Concomitant]
     Route: 048
     Dates: start: 20081216, end: 20081220
  5. IBUPROFENE [Concomitant]
     Route: 048
     Dates: start: 20081216, end: 20081220

REACTIONS (1)
  - PARANOIA [None]
